FAERS Safety Report 5696570-6 (Version None)
Quarter: 2008Q2

REPORT INFORMATION
  Report Type: 
  Country: None (occurrence: None)
  Receive Date: 20080408
  Receipt Date: 20080408
  Transmission Date: 20081010
  Serious: No
  Sender: FDA-Public Use
  Company Number: None

PATIENT
  Sex: Male
  Weight: 102.0593 kg

DRUGS (3)
  1. HEPARIN LOCK-FLUSH [Suspect]
     Indication: INDWELLING CATHETER MANAGEMENT
     Dosage: 5 ML ONCE IV
     Route: 042
     Dates: start: 20080311, end: 20080311
  2. GAMMAGARD [Concomitant]
  3. SODIUM CHLORIDE INJ [Suspect]

REACTIONS (2)
  - CHEST PAIN [None]
  - DIARRHOEA [None]
